FAERS Safety Report 18366050 (Version 1)
Quarter: 2020Q4

REPORT INFORMATION
  Report Type: Spontaneous
  Country: US (occurrence: US)
  Receive Date: 20201009
  Receipt Date: 20201009
  Transmission Date: 20210114
  Serious: No
  Sender: FDA-Public Use
  Company Number: None

PATIENT
  Age: 61 Year
  Sex: Male
  Weight: 114 kg

DRUGS (22)
  1. TORSEMIDE. [Concomitant]
     Active Substance: TORSEMIDE
     Dates: start: 20201008, end: 20201009
  2. ENOXAPARIN [Concomitant]
     Active Substance: ENOXAPARIN
     Dates: start: 20201002
  3. LISINOPRIL. [Concomitant]
     Active Substance: LISINOPRIL
     Dates: start: 20201008, end: 20201009
  4. REMDESIVIR. [Suspect]
     Active Substance: REMDESIVIR
     Indication: COVID-19
     Route: 042
     Dates: start: 20201001, end: 20201009
  5. EPLERENONE. [Concomitant]
     Active Substance: EPLERENONE
     Dates: start: 20200930, end: 20201009
  6. HYDRALAZINE [Concomitant]
     Active Substance: HYDRALAZINE HYDROCHLORIDE
     Dates: start: 20201005, end: 20201008
  7. CARVEDILOL. [Concomitant]
     Active Substance: CARVEDILOL
     Dates: start: 20200930
  8. DOCUSATE [Concomitant]
     Active Substance: DOCUSATE
     Dates: start: 20201002
  9. FENTANYL. [Concomitant]
     Active Substance: FENTANYL
     Dates: start: 20201002, end: 20201008
  10. AZITHROMYCIN ANHYDROUS. [Concomitant]
     Active Substance: AZITHROMYCIN ANHYDROUS
     Dates: start: 20201001, end: 20201003
  11. NOREPINEPHRINE. [Concomitant]
     Active Substance: NOREPINEPHRINE
     Dates: start: 20201001, end: 20201003
  12. ATORVASTATIN [Concomitant]
     Active Substance: ATORVASTATIN
     Dates: start: 20200930
  13. OMEPRAZOLE. [Concomitant]
     Active Substance: OMEPRAZOLE
     Dates: start: 20201002, end: 20201008
  14. INSULIN REGULAR [Concomitant]
     Active Substance: INSULIN NOS
     Dates: start: 20201002
  15. EPOPROSTENOL. [Concomitant]
     Active Substance: EPOPROSTENOL
     Dates: start: 20201001, end: 20201003
  16. MIDAZOLAM. [Concomitant]
     Active Substance: MIDAZOLAM
     Dates: start: 20201001, end: 20201005
  17. PANTOPRAZOLE [Concomitant]
     Active Substance: PANTOPRAZOLE
     Dates: start: 20201009
  18. METOLAZONE. [Concomitant]
     Active Substance: METOLAZONE
     Dates: start: 20201004, end: 20201007
  19. ASPIRIN. [Concomitant]
     Active Substance: ASPIRIN
     Dates: start: 20200930
  20. DEXAMETHASONE. [Concomitant]
     Active Substance: DEXAMETHASONE
     Dates: start: 20201001
  21. FUROSEMIDE. [Concomitant]
     Active Substance: FUROSEMIDE
     Dates: start: 20200930, end: 20201007
  22. PIPERACILLIN AND TAZOBACTAM [Concomitant]
     Active Substance: PIPERACILLIN SODIUM\TAZOBACTAM SODIUM
     Dates: start: 20201001, end: 20201006

REACTIONS (2)
  - Acute kidney injury [None]
  - Hypotension [None]

NARRATIVE: CASE EVENT DATE: 20201009
